FAERS Safety Report 4340841-2 (Version None)
Quarter: 2004Q2

REPORT INFORMATION
  Report Type: 
  Country: None (occurrence: None)
  Receive Date: 20040414
  Receipt Date: 20040325
  Transmission Date: 20050107
  Serious: Yes (Hospitalization)
  Sender: FDA-Public Use
  Company Number: A02200401079

PATIENT
  Age: 54 Year
  Sex: Female

DRUGS (4)
  1. ARIXTRA [Suspect]
     Indication: DEEP VENOUS THROMBOSIS PROPHYLAXIS
     Dosage: 2.5 MG OD, SUBCUTANEOUS
     Route: 058
     Dates: start: 20040126, end: 20040219
  2. ARIXTRA [Suspect]
     Indication: KNEE ARTHROPLASTY
     Dosage: 2.5 MG OD, SUBCUTANEOUS
     Route: 058
     Dates: start: 20040126, end: 20040219
  3. NISISCO - (VALSARTAN/HYDROCHLOROTHIAZIDE) - TABLET [Suspect]
     Indication: HYPERTENSION
     Dosage: 1 DF OD, ORAL; A FEW YEARS
     Route: 048
     Dates: end: 20040227
  4. CHONDROSULF (CHONDROITIN SULFATE SODIUM) [Concomitant]

REACTIONS (3)
  - CONFUSIONAL STATE [None]
  - SPEECH DISORDER [None]
  - TRANSIENT ISCHAEMIC ATTACK [None]
